FAERS Safety Report 8170235-3 (Version None)
Quarter: 2012Q1

REPORT INFORMATION
  Report Type: 
  Country: None (occurrence: None)
  Receive Date: 20120104
  Receipt Date: 20111208
  Transmission Date: 20120608
  Serious: No
  Sender: FDA-Public Use
  Company Number: 2011HGS-002673

PATIENT
  Age: 61 Year
  Sex: Female
  Weight: 52.1637 kg

DRUGS (7)
  1. BENLYSTA [Suspect]
     Indication: SYSTEMIC LUPUS ERYTHEMATOSUS
     Dosage: 10 MG/KG, EVERY 2 WEEKS X 3 THEN  EVERY 4 WEEKS, INTRAVENOUS DRIP
     Route: 041
     Dates: start: 20110608
  2. PREDNISONE [Concomitant]
  3. NEXIUM [Concomitant]
  4. PLAQUENIL (HYDROXYCHLOROQUINE SULFATE) (HYDROXYCHLOROQUINE SULFATE) [Concomitant]
  5. METHOTREXATE [Concomitant]
  6. ACTONEL (RISEDRONATE SODIUM) (RISEDRONATE SDOIUM) [Concomitant]
  7. CELLCEPT (MYCOPHENOLATE SODIUM) (MYCOPHENOLATE) [Concomitant]

REACTIONS (1)
  - NIGHT SWEATS [None]
